FAERS Safety Report 6578703-2 (Version None)
Quarter: 2010Q1

REPORT INFORMATION
  Report Type: 
  Country: None (occurrence: None)
  Receive Date: 20100202
  Receipt Date: 20100119
  Transmission Date: 20100710
  Serious: Yes (Hospitalization)
  Sender: FDA-Public Use
  Company Number: 2010SP003880

PATIENT
  Age: 58 Year
  Sex: Male

DRUGS (8)
  1. REMERGIL (MIRTAZAPINE) [Suspect]
     Indication: DRUG USE FOR UNKNOWN INDICATION
     Dosage: 45 MG, QD
  2. QUILONUM RETARD (LITHIUM CARBONATE) [Suspect]
     Indication: DRUG USE FOR UNKNOWN INDICATION
     Dosage: 225, 450 MG, QD, 25 MG QD
     Dates: start: 20070810, end: 20070810
  3. QUILONUM RETARD (LITHIUM CARBONATE) [Suspect]
     Indication: DRUG USE FOR UNKNOWN INDICATION
     Dosage: 225, 450 MG, QD, 25 MG QD
     Dates: start: 20070808
  4. QUILONUM RETARD (LITHIUM CARBONATE) [Suspect]
     Indication: DRUG USE FOR UNKNOWN INDICATION
     Dosage: 225, 450 MG, QD, 25 MG QD
     Dates: start: 20070809
  5. BUPROPION HCL [Suspect]
     Indication: DRUG USE FOR UNKNOWN INDICATION
     Dosage: 150 MG, QD
     Dates: start: 20070802
  6. NORTRILEN (NORTRIPTYLINE HYDROCHLORIDE) [Suspect]
     Indication: DRUG USE FOR UNKNOWN INDICATION
     Dosage: 75,75, 50, 25 MG, QD
     Dates: start: 20070728, end: 20070731
  7. NORTRILEN (NORTRIPTYLINE HYDROCHLORIDE) [Suspect]
     Indication: DRUG USE FOR UNKNOWN INDICATION
     Dosage: 75,75, 50, 25 MG, QD
     Dates: start: 20070801
  8. NORTRILEN (NORTRIPTYLINE HYDROCHLORIDE) [Suspect]
     Indication: DRUG USE FOR UNKNOWN INDICATION
     Dosage: 75,75, 50, 25 MG, QD
     Dates: start: 20070802

REACTIONS (3)
  - ACCOMMODATION DISORDER [None]
  - DRUG INTERACTION [None]
  - VISION BLURRED [None]
